FAERS Safety Report 10239169 (Version 1)
Quarter: 2014Q2

REPORT INFORMATION
  Report Type: Spontaneous
  Country: US (occurrence: US)
  Receive Date: 20140616
  Receipt Date: 20140616
  Transmission Date: 20141212
  Serious: No
  Sender: FDA-Public Use
  Company Number: US-PFIZER INC-2014160712

PATIENT
  Age: 60 Year
  Sex: Female
  Weight: 81.63 kg

DRUGS (12)
  1. IBUPROFEN [Suspect]
     Indication: PAIN
     Dosage: UNK, AS NEEDED
  2. TEGRETOL [Concomitant]
     Dosage: UNK
  3. KLONOPIN [Concomitant]
     Dosage: UNK
  4. LEVOTHYROXINE [Concomitant]
     Dosage: UNK
  5. LIDOCAINE [Concomitant]
     Dosage: UNK
  6. LIDOCAINE [Concomitant]
     Dosage: UNK
  7. ZOFRAN [Concomitant]
     Dosage: UNK
  8. OXYCODONE [Concomitant]
     Dosage: UNK
  9. BENZTROPEINE [Concomitant]
     Dosage: UNK
  10. VICOPROFEN [Concomitant]
     Dosage: UNK
  11. BOTOX [Concomitant]
     Indication: DYSTONIA
     Dosage: UNK
  12. TYLENOL [Concomitant]
     Dosage: UNK

REACTIONS (1)
  - Drug ineffective [Unknown]
